FAERS Safety Report 7286499-4 (Version None)
Quarter: 2011Q1

REPORT INFORMATION
  Report Type: 
  Country: None (occurrence: None)
  Receive Date: 20110131
  Receipt Date: 20110124
  Transmission Date: 20110831
  Serious: Yes (Hospitalization, Other)
  Sender: FDA-Public Use
  Company Number: 2009SP023465

PATIENT
  Age: 42 Year
  Sex: Female
  Weight: 70.3075 kg

DRUGS (1)
  1. NUVARING [Suspect]
     Indication: CONTRACEPTION
     Dates: start: 20071203, end: 20080101

REACTIONS (12)
  - CHOLELITHIASIS [None]
  - PLEURAL EFFUSION [None]
  - OVARIAN CYST [None]
  - ATELECTASIS [None]
  - COAGULATION FACTOR VIII LEVEL INCREASED [None]
  - PULMONARY EMBOLISM [None]
  - UTERINE LEIOMYOMA [None]
  - HEPATIC CYST [None]
  - LUNG INFILTRATION [None]
  - ILEUS [None]
  - PELVIC INFLAMMATORY DISEASE [None]
  - OVARIAN ENLARGEMENT [None]
